FAERS Safety Report 9224307 (Version 1)
Quarter: 2013Q2

REPORT INFORMATION
  Report Type: Spontaneous
  Country: FR (occurrence: FR)
  Receive Date: 20130411
  Receipt Date: 20130411
  Transmission Date: 20140414
  Serious: Yes (Other)
  Sender: FDA-Public Use
  Company Number: FR-BAYER-2013-045370

PATIENT
  Age: 29 Year
  Sex: Male

DRUGS (5)
  1. IZILOX [Suspect]
     Indication: TUBERCULOSIS
     Dosage: 400 MG, QD
     Route: 048
     Dates: start: 201206
  2. CYCLOSERINE [Suspect]
     Indication: TUBERCULOSIS
     Dosage: 250 MG, QD
     Route: 047
     Dates: start: 201206
  3. VOGALENE LYOC [Suspect]
     Indication: TUBERCULOSIS
     Dosage: 3 DF, QD
     Route: 048
     Dates: start: 201206
  4. TRECATOR [Suspect]
     Indication: TUBERCULOSIS
     Dosage: 750 MG, QD
     Route: 048
     Dates: start: 201206
  5. PASER [Suspect]
     Indication: TUBERCULOSIS
     Dosage: DAILY DOSE 10 G

REACTIONS (1)
  - Hypothyroidism [Not Recovered/Not Resolved]
